FAERS Safety Report 25262397 (Version 1)
Quarter: 2025Q2

REPORT INFORMATION
  Report Type: Report from Study
  Country: US (occurrence: US)
  Receive Date: 20250502
  Receipt Date: 20250502
  Transmission Date: 20250717
  Serious: Yes (Hospitalization, Other)
  Sender: INSMED
  Company Number: US-INSMED-2024-02262-USAA

PATIENT
  Sex: Female
  Weight: 44.444 kg

DRUGS (4)
  1. ARIKAYCE [Suspect]
     Active Substance: AMIKACIN
     Indication: Mycobacterium avium complex infection
     Dosage: 590 MILLIGRAM, QD
     Route: 055
     Dates: start: 20240530, end: 20240626
  2. ARIKAYCE [Suspect]
     Active Substance: AMIKACIN
     Dosage: 590 MILLIGRAM, QD
     Route: 055
     Dates: start: 2024, end: 2024
  3. ARIKAYCE [Suspect]
     Active Substance: AMIKACIN
     Dosage: 590 MILLIGRAM, QOD
     Route: 055
     Dates: start: 2024, end: 2025
  4. AZITHROMYCIN [Suspect]
     Active Substance: AZITHROMYCIN
     Indication: Product used for unknown indication
     Route: 048

REACTIONS (29)
  - Hip fracture [Unknown]
  - Hospitalisation [Unknown]
  - Secretion discharge [Not Recovered/Not Resolved]
  - Limb injury [Recovered/Resolved]
  - Petechiae [Not Recovered/Not Resolved]
  - Haematoma [Not Recovered/Not Resolved]
  - Hypoaesthesia oral [Recovered/Resolved]
  - Migraine [Unknown]
  - Weight gain poor [Not Recovered/Not Resolved]
  - Rehabilitation therapy [Unknown]
  - Road traffic accident [Unknown]
  - Insomnia [Recovered/Resolved]
  - Back pain [Recovered/Resolved]
  - Sputum increased [Not Recovered/Not Resolved]
  - Cough [Recovered/Resolved]
  - Dysphonia [Recovered/Resolved]
  - Dysphonia [Recovering/Resolving]
  - Adverse drug reaction [Recovering/Resolving]
  - Productive cough [Not Recovered/Not Resolved]
  - Asthenia [Recovering/Resolving]
  - Fatigue [Not Recovered/Not Resolved]
  - Diarrhoea [Recovering/Resolving]
  - Product dose omission issue [Unknown]
  - Product package associated injury [Unknown]
  - Product packaging difficult to open [Unknown]
  - Wrong technique in device usage process [Unknown]
  - Drug dose omission by device [Unknown]
  - Therapy interrupted [Unknown]
  - Off label use [Unknown]

NARRATIVE: CASE EVENT DATE: 20240101
